FAERS Safety Report 20817182 (Version 3)
Quarter: 2024Q4

REPORT INFORMATION
  Report Type: Report from Study
  Country: CA (occurrence: CA)
  Receive Date: 20220512
  Receipt Date: 20241226
  Transmission Date: 20250115
  Serious: Yes (Hospitalization)
  Sender: ROCHE
  Company Number: CA-ROCHE-3093571

PATIENT
  Age: 65 Year
  Sex: Female

DRUGS (8)
  1. OCREVUS [Suspect]
     Active Substance: OCRELIZUMAB
     Indication: Primary progressive multiple sclerosis
     Dosage: MORE DOSAGE INFORMATION IS 300 MG AT DAY 0 AND 14, THEN 600 MG EVERY 6 MONTH?CONCENTRATE FOR INTRAVE
     Route: 042
     Dates: start: 20190807
  2. METFORMIN [Concomitant]
     Active Substance: METFORMIN HYDROCHLORIDE
  3. OZEMPIC [Concomitant]
     Active Substance: SEMAGLUTIDE
  4. GLYBURIDE [Concomitant]
     Active Substance: GLYBURIDE
  5. PERINDOPRIL [Concomitant]
     Active Substance: PERINDOPRIL
  6. ERGOCALCIFEROL [Concomitant]
     Active Substance: ERGOCALCIFEROL
  7. VITAMIN B12 [Concomitant]
     Active Substance: CYANOCOBALAMIN
  8. ATIVAN [Concomitant]
     Active Substance: LORAZEPAM
     Indication: Sedation

REACTIONS (3)
  - COVID-19 [Not Recovered/Not Resolved]
  - Cataract [Recovering/Resolving]
  - Off label use [Unknown]

NARRATIVE: CASE EVENT DATE: 20190807
